FAERS Safety Report 7359418-X (Version None)
Quarter: 2011Q1

REPORT INFORMATION
  Report Type: 
  Country: None (occurrence: None)
  Receive Date: 20110317
  Receipt Date: 20091215
  Transmission Date: 20110831
  Serious: No
  Sender: FDA-Public Use
  Company Number: US-PFIZER INC-2009280547

PATIENT
  Sex: Female

DRUGS (5)
  1. NORVASC [Suspect]
     Dosage: UNK
  2. TENORMIN [Suspect]
     Dosage: 25 MG, UNK
  3. ACCUPRIL [Suspect]
     Dosage: UNK
  4. LISINOPRIL [Suspect]
     Indication: HYPERTENSION
     Dosage: 10 MG, 1X/DAY
     Dates: start: 20090301, end: 20090501
  5. HYDROCHLOROTHIAZIDE [Suspect]
     Indication: HYPERTENSION
     Dosage: 12.5 MG, 1X/DAY
     Dates: start: 20071001, end: 20071201

REACTIONS (6)
  - HEART RATE DECREASED [None]
  - COUGH [None]
  - BURNING SENSATION [None]
  - PAIN [None]
  - DRUG INEFFECTIVE [None]
  - PAIN IN EXTREMITY [None]
